FAERS Safety Report 13358163 (Version 1)
Quarter: 2017Q1

REPORT INFORMATION
  Report Type: Spontaneous
  Country: US (occurrence: US)
  Receive Date: 20170321
  Receipt Date: 20170321
  Transmission Date: 20170429
  Serious: Yes (Hospitalization, Disabling)
  Sender: FDA-Public Use
  Company Number: None

PATIENT
  Age: 64 Year
  Sex: Male
  Weight: 97.1 kg

DRUGS (7)
  1. ZETIA (CHRONIC) [Concomitant]
  2. SERTRALINE [Suspect]
     Active Substance: SERTRALINE HYDROCHLORIDE
     Indication: DEPRESSION
     Route: 048
     Dates: start: 20161013, end: 20170321
  3. MARIJUANA [Concomitant]
     Active Substance: CANNABIS SATIVA SUBSP. INDICA TOP
  4. LORAZEPAM. [Concomitant]
     Active Substance: LORAZEPAM
  5. ASA [Concomitant]
     Active Substance: ASPIRIN
  6. LISINOPRIL. [Concomitant]
     Active Substance: LISINOPRIL
  7. PERCOCET [Concomitant]
     Active Substance: ACETAMINOPHEN\OXYCODONE HYDROCHLORIDE

REACTIONS (6)
  - Activities of daily living impaired [None]
  - Musculoskeletal pain [None]
  - Impaired work ability [None]
  - Fall [None]
  - Haematoma [None]
  - Discomfort [None]

NARRATIVE: CASE EVENT DATE: 20161103
